FAERS Safety Report 9289939 (Version 2)
Quarter: 2013Q4

REPORT INFORMATION
  Report Type: Spontaneous
  Country: US (occurrence: US)
  Receive Date: 20130515
  Receipt Date: 20131220
  Transmission Date: 20140711
  Serious: Yes (Disabling)
  Sender: FDA-Public Use
  Company Number: US-BAYER-2013-060340

PATIENT
  Age: 18 Year
  Sex: Female
  Weight: 61.22 kg

DRUGS (8)
  1. YAZ [Suspect]
     Indication: ACNE
     Dosage: UNK
     Dates: start: 2009, end: 2011
  2. YASMIN [Suspect]
     Indication: ACNE
     Dosage: UNK
     Dates: start: 2009, end: 2011
  3. OCELLA [Suspect]
     Indication: ACNE
     Dosage: UNK
     Dates: start: 2009, end: 2011
  4. MAALOX [Concomitant]
  5. LIDOCAINE [Concomitant]
  6. PHENERGAN [Concomitant]
  7. NAPROSYN [Concomitant]
  8. PEPCID [Concomitant]

REACTIONS (10)
  - Deep vein thrombosis [None]
  - Pain [None]
  - Injury [None]
  - General physical health deterioration [None]
  - Deformity [None]
  - Emotional distress [None]
  - Pain [None]
  - Anxiety [None]
  - Anhedonia [None]
  - Amenorrhoea [None]
